FAERS Safety Report 9780842 (Version 1)
Quarter: 2013Q4

REPORT INFORMATION
  Report Type: Spontaneous
  Country: AU (occurrence: AU)
  Receive Date: 20131224
  Receipt Date: 20131224
  Transmission Date: 20140711
  Serious: Yes (Other)
  Sender: FDA-Public Use
  Company Number: PHHY2013AU149563

PATIENT
  Sex: 0

DRUGS (1)
  1. CLOZAPINE [Suspect]
     Dosage: UNK UKN, UNK

REACTIONS (1)
  - Congestive cardiomyopathy [Unknown]
